FAERS Safety Report 4647592-5 (Version None)
Quarter: 2005Q2

REPORT INFORMATION
  Report Type: 
  Country: None (occurrence: None)
  Receive Date: 20050428
  Receipt Date: 20050419
  Transmission Date: 20051028
  Serious: Yes (Death)
  Sender: FDA-Public Use
  Company Number: US-MERCK-0504USA03435

PATIENT
  Age: 86 Year
  Sex: Female

DRUGS (1)
  1. VIOXX [Suspect]
     Route: 065

REACTIONS (2)
  - ADVERSE EVENT [None]
  - TRANSIENT ISCHAEMIC ATTACK [None]
